FAERS Safety Report 4448007-2 (Version None)
Quarter: 2004Q3

REPORT INFORMATION
  Report Type: 
  Country: None (occurrence: None)
  Receive Date: 20040913
  Receipt Date: 20040804
  Transmission Date: 20050211
  Serious: Yes (Life-Threatening, Disabling, Other)
  Sender: FDA-Public Use
  Company Number: US-MERCK-0408USA00416

PATIENT
  Age: 66 Year
  Sex: Female
  Weight: 49 kg

DRUGS (4)
  1. EMEND [Suspect]
     Indication: ANTIEMETIC SUPPORTIVE CARE
     Route: 048
     Dates: start: 20040713, end: 20040713
  2. EMEND [Suspect]
     Route: 048
     Dates: start: 20040714, end: 20040714
  3. CYTOXAN [Suspect]
     Route: 065
     Dates: end: 20040713
  4. TAXOTERE [Suspect]
     Route: 065
     Dates: end: 20040713

REACTIONS (14)
  - AORTIC CALCIFICATION [None]
  - CONFUSIONAL STATE [None]
  - CONVULSION [None]
  - DEHYDRATION [None]
  - FEBRILE NEUTROPENIA [None]
  - HYPERTENSION [None]
  - INAPPROPRIATE ANTIDIURETIC HORMONE SECRETION [None]
  - LETHARGY [None]
  - MUCOSAL INFLAMMATION [None]
  - NAUSEA [None]
  - NEUTROPENIA [None]
  - ODYNOPHAGIA [None]
  - URINE ABNORMALITY [None]
  - VOMITING [None]
